FAERS Safety Report 9192813 (Version 1)
Quarter: 2013Q1

REPORT INFORMATION
  Report Type: Spontaneous
  Country: FR (occurrence: FR)
  Receive Date: 20130327
  Receipt Date: 20130327
  Transmission Date: 20140127
  Serious: Yes (Other)
  Sender: FDA-Public Use
  Company Number: FR-PFIZER INC-2013092440

PATIENT
  Age: 39 Year
  Sex: Male

DRUGS (8)
  1. REVATIO [Suspect]
     Indication: PULMONARY ARTERIAL HYPERTENSION
     Dosage: 20 MG, 3X/DAY
     Route: 048
     Dates: end: 20111102
  2. REVATIO [Interacting]
     Dosage: 40 MG, 3X/DAY
     Dates: start: 20111102
  3. TRACLEER [Interacting]
     Indication: PULMONARY ARTERIAL HYPERTENSION
     Dosage: 125 MG, 2X/DAY
     Route: 048
     Dates: start: 2007, end: 20120604
  4. OMEPRAZOLE [Concomitant]
     Dosage: 20 MG, 1X/DAY
     Route: 048
  5. SERETIDE DISKUS [Concomitant]
     Dosage: 1 DF, 2X/DAY
     Route: 055
  6. VENTAVIS [Concomitant]
     Dosage: 5 MG, 6 TIMES DAILY
     Route: 048
     Dates: start: 20111102
  7. LASILIX [Concomitant]
     Indication: PULMONARY ARTERIAL HYPERTENSION
     Dosage: 40 MG, 1X/DAY
     Route: 048
     Dates: start: 20101013
  8. PREVISCAN [Concomitant]
     Indication: PULMONARY ARTERIAL HYPERTENSION
     Dosage: 20 MG, 1X/DAY
     Route: 048

REACTIONS (2)
  - Drug interaction [Recovered/Resolved]
  - Hepatocellular injury [Recovered/Resolved]
